FAERS Safety Report 10897144 (Version 4)
Quarter: 2021Q2

REPORT INFORMATION
  Report Type: Spontaneous
  Country: US (occurrence: US)
  Receive Date: 20150309
  Receipt Date: 20210423
  Transmission Date: 20210716
  Serious: Yes (Other)
  Sender: FDA-Public Use
  Company Number: US-PFIZER INC-2015079248

PATIENT
  Age: 45 Year
  Sex: Female
  Weight: 131.5 kg

DRUGS (2)
  1. GENOTROPIN [Suspect]
     Active Substance: SOMATROPIN
     Indication: DWARFISM
     Dosage: 0.2 MG, DAILY
     Route: 058
     Dates: start: 20150216
  2. GENOTROPIN [Suspect]
     Active Substance: SOMATROPIN
     Dosage: 1 MG, DAILY

REACTIONS (4)
  - Weight decreased [Unknown]
  - Fatigue [Unknown]
  - Injection site bruising [Unknown]
  - Pituitary tumour [Unknown]

NARRATIVE: CASE EVENT DATE: 20150225
